FAERS Safety Report 18701405 (Version 2)
Quarter: 2021Q1

REPORT INFORMATION
  Report Type: Spontaneous
  Country: US (occurrence: US)
  Receive Date: 20210105
  Receipt Date: 20210304
  Transmission Date: 20210419
  Serious: No
  Sender: FDA-Public Use
  Company Number: US-ASTRAZENECA-2020SF75077

PATIENT
  Age: 645 Month
  Sex: Female
  Weight: 95.3 kg

DRUGS (2)
  1. FASENRA [Suspect]
     Active Substance: BENRALIZUMAB
     Indication: EOSINOPHIL COUNT INCREASED
     Dosage: UNKNOWN
     Route: 058
     Dates: start: 20201021
  2. FASENRA [Suspect]
     Active Substance: BENRALIZUMAB
     Indication: ASTHMA
     Dosage: UNKNOWN
     Route: 058
     Dates: start: 20201021

REACTIONS (7)
  - Lip dry [Unknown]
  - Lip exfoliation [Unknown]
  - Oral discomfort [Unknown]
  - Paraesthesia oral [Unknown]
  - Lip pain [Unknown]
  - Chapped lips [Unknown]
  - Lip swelling [Unknown]

NARRATIVE: CASE EVENT DATE: 202012
